FAERS Safety Report 13916175 (Version 2)
Quarter: 2024Q4

REPORT INFORMATION
  Report Type: Report from Study
  Country: CA (occurrence: CA)
  Receive Date: 20170829
  Receipt Date: 20241223
  Transmission Date: 20250114
  Serious: Yes (Other)
  Sender: PFIZER
  Company Number: CA-TAKEDA-2017TUS017642

PATIENT
  Age: 37 Year
  Sex: Male

DRUGS (12)
  1. PANTOPRAZOLE SODIUM [Suspect]
     Active Substance: PANTOPRAZOLE SODIUM
     Dosage: 40 MG, UNK
     Route: 048
  2. ENTYVIO [Suspect]
     Active Substance: VEDOLIZUMAB
     Indication: Colitis ulcerative
     Dosage: 300 MG, UNK
     Route: 042
     Dates: start: 20160414
  3. ENTYVIO [Suspect]
     Active Substance: VEDOLIZUMAB
     Dosage: 300 MILLIGRAM, Q4WEEKS
     Route: 042
     Dates: start: 20170527
  4. ENTYVIO [Suspect]
     Active Substance: VEDOLIZUMAB
     Dosage: 300 MILLIGRAM, Q4WEEKS
     Route: 042
  5. ASACOL [Concomitant]
     Active Substance: MESALAMINE
     Dosage: 1200 MG, TID
     Route: 048
  6. TACROLIMUS [Concomitant]
     Active Substance: TACROLIMUS
     Dosage: 5 MG, QD
     Route: 048
  7. ZOPICLONE [Concomitant]
     Active Substance: ZOPICLONE
     Dosage: 7.5 MG, UNK
     Route: 048
  8. TYLENOL [Concomitant]
     Active Substance: ACETAMINOPHEN
     Dosage: UNK
     Route: 048
  9. SYNTHROID [Concomitant]
     Active Substance: LEVOTHYROXINE SODIUM
     Dosage: 100 UG, QD
     Route: 048
  10. ATIVAN [Concomitant]
     Active Substance: LORAZEPAM
     Dosage: 0.5 MG, UNK
     Route: 048
  11. MIRTAZAPINE [Concomitant]
     Active Substance: MIRTAZAPINE
     Dosage: UNK
     Dates: start: 202105
  12. ACCUTANE [Concomitant]
     Active Substance: ISOTRETINOIN
     Dosage: UNK

REACTIONS (3)
  - Clostridium difficile infection [Recovering/Resolving]
  - Headache [Not Recovered/Not Resolved]
  - Rectal fissure [Recovering/Resolving]

NARRATIVE: CASE EVENT DATE: 20170817
